FAERS Safety Report 23254957 (Version 1)
Quarter: 2023Q4

REPORT INFORMATION
  Report Type: Spontaneous
  Country: US (occurrence: US)
  Receive Date: 20231203
  Receipt Date: 20231203
  Transmission Date: 20240109
  Serious: No
  Sender: FDA-Public Use
  Company Number: US-AMNEAL PHARMACEUTICALS-2022-AMRX-03941

PATIENT
  Sex: Female

DRUGS (4)
  1. ISOTRETINOIN [Suspect]
     Active Substance: ISOTRETINOIN
     Indication: Product used for unknown indication
     Dosage: 30 MG
     Route: 065
  2. ISOTRETINOIN [Concomitant]
     Active Substance: ISOTRETINOIN
     Indication: Product used for unknown indication
     Dosage: 40 MG
  3. ISOTRETINOIN [Concomitant]
     Active Substance: ISOTRETINOIN
     Dosage: 30 MG
  4. ISOTRETINOIN [Concomitant]
     Active Substance: ISOTRETINOIN
     Dosage: 20 MG
     Route: 065

REACTIONS (1)
  - Adverse event [Unknown]
